FAERS Safety Report 5518011-1 (Version None)
Quarter: 2007Q4

REPORT INFORMATION
  Report Type: 
  Country: None (occurrence: None)
  Receive Date: 20071115
  Receipt Date: 20071107
  Transmission Date: 20080405
  Serious: Yes (Other)
  Sender: FDA-Public Use
  Company Number: PHBS2007JP18713

PATIENT
  Sex: Female

DRUGS (3)
  1. ZOMETA [Suspect]
     Indication: BACK PAIN
     Dosage: 4 MG, UNK
     Route: 042
     Dates: start: 20070525, end: 20070701
  2. AREDIA [Suspect]
     Indication: MULTIPLE MYELOMA
     Route: 042
     Dates: start: 20030501
  3. BISPHONAL [Suspect]
     Dates: start: 20040101

REACTIONS (5)
  - DENTAL CARIES [None]
  - OSTEONECROSIS [None]
  - PAIN IN JAW [None]
  - PRIMARY SEQUESTRUM [None]
  - TOOTH ABSCESS [None]
